FAERS Safety Report 6522090-2 (Version None)
Quarter: 2009Q4

REPORT INFORMATION
  Report Type: 
  Country: None (occurrence: None)
  Receive Date: 20091222
  Receipt Date: 20091217
  Transmission Date: 20100525
  Serious: Yes (Hospitalization)
  Sender: FDA-Public Use
  Company Number: 091218-0001237

PATIENT
  Age: 2 Year
  Sex: Female
  Weight: 13.6079 kg

DRUGS (7)
  1. SABRIL [Suspect]
     Indication: LENNOX-GASTAUT SYNDROME
     Dosage: 1O ML; BID
     Dates: start: 20090101, end: 20091215
  2. KLONOPIN [Concomitant]
  3. LAMCTAL [Concomitant]
  4. RUFINAMIDE [Concomitant]
  5. ATIVAN [Concomitant]
  6. CLONIDINE [Concomitant]
  7. VAGAL NERVE STIMULATROO IMPLANT [Concomitant]

REACTIONS (3)
  - CONVULSION [None]
  - DRUG INEFFECTIVE [None]
  - PNEUMONIA ASPIRATION [None]
